FAERS Safety Report 10484914 (Version 1)
Quarter: 2014Q3

REPORT INFORMATION
  Report Type: Spontaneous
  Country: IT (occurrence: IT)
  Receive Date: 20140930
  Receipt Date: 20140930
  Transmission Date: 20150326
  Serious: Yes (Hospitalization)
  Sender: FDA-Public Use
  Company Number: IT-BAYER-2014-143500

PATIENT
  Age: 74 Year
  Sex: Male

DRUGS (8)
  1. LASIX [Concomitant]
     Active Substance: FUROSEMIDE
     Indication: RENAL FAILURE CHRONIC
     Dosage: UNK
     Route: 048
     Dates: start: 20130224, end: 20140224
  2. TORVAST [Concomitant]
     Active Substance: ATORVASTATIN
     Dosage: 20 MG, DAILY DOSE
     Route: 048
     Dates: start: 20130224, end: 20140224
  3. CARDIOASPIRIN [Suspect]
     Active Substance: ASPIRIN
     Indication: ANTICOAGULANT THERAPY
     Dosage: 100 MG, DAILY DOSE
     Route: 048
     Dates: start: 20130224, end: 20140224
  4. HUMALOG [Concomitant]
     Active Substance: INSULIN LISPRO
     Indication: TYPE 2 DIABETES MELLITUS
     Dosage: 12 IU, DAILY DOSE
     Route: 058
     Dates: start: 20130224, end: 20140224
  5. PANTOPRAZOLE [Concomitant]
     Active Substance: PANTOPRAZOLE SODIUM
     Dosage: DAILY DOSE 40 MG
     Route: 048
     Dates: start: 20130224, end: 20140224
  6. COUMADIN [Interacting]
     Active Substance: WARFARIN SODIUM
     Indication: THROMBOSIS PROPHYLAXIS
     Dosage: UNK
     Route: 048
     Dates: start: 20130224, end: 20140224
  7. BISOPROLOL HEMIFUMARATE [Concomitant]
     Active Substance: BISOPROLOL
     Indication: CARDIAC FAILURE
     Dosage: 1.25 MG, DAILY DOSE
     Route: 048
     Dates: start: 20130224, end: 20140224
  8. RAMIPRIL. [Concomitant]
     Active Substance: RAMIPRIL
     Indication: CARDIAC FAILURE
     Dosage: 2.5 MG, DAILY DOSE
     Route: 048
     Dates: start: 20130224, end: 20140224

REACTIONS (2)
  - Epistaxis [Not Recovered/Not Resolved]
  - Dyspnoea [Not Recovered/Not Resolved]

NARRATIVE: CASE EVENT DATE: 20140224
